FAERS Safety Report 25497092 (Version 1)
Quarter: 2025Q3

REPORT INFORMATION
  Report Type: Spontaneous
  Country: US (occurrence: US)
  Receive Date: 20250701
  Receipt Date: 20250701
  Transmission Date: 20251021
  Serious: No
  Sender: SANOFI AVENTIS
  Company Number: US-SA-2025SA183566

PATIENT
  Age: 68 Year
  Sex: Male

DRUGS (1)
  1. DUPIXENT [Suspect]
     Active Substance: DUPILUMAB
     Indication: Polymyalgia rheumatica
     Dates: start: 20250524

REACTIONS (5)
  - Rhinorrhoea [Unknown]
  - Pain in extremity [Unknown]
  - Peripheral swelling [Unknown]
  - Product preparation error [Unknown]
  - Product use in unapproved indication [Unknown]

NARRATIVE: CASE EVENT DATE: 20250101
